FAERS Safety Report 5671716-4 (Version None)
Quarter: 2008Q1

REPORT INFORMATION
  Report Type: 
  Country: None (occurrence: None)
  Receive Date: 20080314
  Receipt Date: 20080306
  Transmission Date: 20080703
  Serious: Yes (Other)
  Sender: FDA-Public Use
  Company Number: 45937

PATIENT
  Age: 17 Year
  Sex: Male

DRUGS (1)
  1. CYTARABINE [Suspect]
     Indication: NON-HODGKIN'S LYMPHOMA
     Dosage: 5.7 IV Q 12 HOURS
     Route: 042
     Dates: start: 20080228

REACTIONS (2)
  - HYPOTENSION [None]
  - SHOCK [None]
